FAERS Safety Report 9698956 (Version 1)
Quarter: 2013Q4

REPORT INFORMATION
  Report Type: Spontaneous
  Country: SE (occurrence: SE)
  Receive Date: 20131120
  Receipt Date: 20131120
  Transmission Date: 20140711
  Serious: Yes (Hospitalization, Other)
  Sender: FDA-Public Use
  Company Number: SE-ABBVIE-13P-150-1169203-00

PATIENT
  Age: 34 Year
  Sex: Male

DRUGS (8)
  1. HUMIRA [Suspect]
     Indication: PSORIASIS
     Dosage: INDUCTION DOSE
     Dates: start: 20080421
  2. HUMIRA [Suspect]
     Indication: PSORIATIC ARTHROPATHY
  3. HUMIRA [Suspect]
  4. HUMIRA [Suspect]
     Dosage: 80 MG 2-4 TIMES/YEAR
     Dates: end: 20130423
  5. METHOTREXATE [Concomitant]
     Indication: PSORIASIS
     Dosage: VARYING BETWEEN 10-20 MILLIGRAM
     Dates: start: 20050101, end: 20130423
  6. METHOTREXATE [Concomitant]
     Indication: PSORIATIC ARTHROPATHY
  7. FOLACIN [Concomitant]
     Indication: PRODUCT USED FOR UNKNOWN INDICATION
     Dates: start: 20130423
  8. TOPICAL GROUP 3 STEROIDE [Concomitant]

REACTIONS (8)
  - Aphasia [Recovering/Resolving]
  - Multiple sclerosis [Recovering/Resolving]
  - Hemiparesis [Not Recovered/Not Resolved]
  - Visual acuity reduced [Recovering/Resolving]
  - Multiple sclerosis relapse [Recovering/Resolving]
  - Slow speech [Not Recovered/Not Resolved]
  - Gait disturbance [Not Recovered/Not Resolved]
  - Psoriasis [Not Recovered/Not Resolved]
